FAERS Safety Report 16756500 (Version 1)
Quarter: 2019Q3

REPORT INFORMATION
  Report Type: Spontaneous
  Country: FR (occurrence: FR)
  Receive Date: 20190829
  Receipt Date: 20190829
  Transmission Date: 20191005
  Serious: Yes (Hospitalization, Congenital Anomaly, Other)
  Sender: FDA-Public Use
  Company Number: FR-JNJFOC-20190828012

PATIENT
  Sex: Male
  Weight: 4.03 kg

DRUGS (3)
  1. FOLIC ACID. [Concomitant]
     Active Substance: FOLIC ACID
     Indication: PROPHYLAXIS
     Dosage: UNK UNK, UNK
     Route: 064
     Dates: start: 20050215, end: 20051109
  2. TOPIRAMATE. [Suspect]
     Active Substance: TOPIRAMATE
     Indication: EPILEPSY
     Dosage: 300 MG, QD
     Route: 064
     Dates: start: 20050213, end: 20051109
  3. DEPAKINE CHRONO [Suspect]
     Active Substance: VALPROATE SODIUM
     Indication: EPILEPSY
     Dosage: 1500 MG, QD
     Route: 064
     Dates: start: 20050215, end: 20051109

REACTIONS (38)
  - Ophthalmological examination abnormal [Unknown]
  - Enuresis [Unknown]
  - Disorientation [Unknown]
  - Dysarthria [Unknown]
  - Coordination abnormal [Unknown]
  - Dyslexia [Unknown]
  - Motor dysfunction [Unknown]
  - Hypersensitivity [Unknown]
  - Hypoacusis [Unknown]
  - Rash [Unknown]
  - Fatigue [Unknown]
  - Disturbance in attention [Unknown]
  - Dacryostenosis congenital [Unknown]
  - Conjunctivitis [Unknown]
  - Memory impairment [Unknown]
  - Dysmorphism [Unknown]
  - Motor developmental delay [Unknown]
  - Cow^s milk intolerance [Unknown]
  - Foetal exposure during pregnancy [Recovered/Resolved]
  - Learning disorder [Unknown]
  - Bradyphrenia [Unknown]
  - Speech sound disorder [Unknown]
  - Psychiatric symptom [Unknown]
  - Communication disorder [Unknown]
  - Speech disorder developmental [Unknown]
  - Language disorder [Unknown]
  - Speech disorder [Unknown]
  - Restlessness [Unknown]
  - Heterophoria [Unknown]
  - Nasopharyngitis [Unknown]
  - Reading disorder [Unknown]
  - Hypermetropia [Unknown]
  - Cough [Unknown]
  - Psychomotor skills impaired [Unknown]
  - Social (pragmatic) communication disorder [Unknown]
  - Eye discharge [Unknown]
  - Dysgraphia [Unknown]
  - Hyperthermia [Unknown]

NARRATIVE: CASE EVENT DATE: 2006
